FAERS Safety Report 5570458-3 (Version None)
Quarter: 2007Q4

REPORT INFORMATION
  Report Type: 
  Country: None (occurrence: None)
  Receive Date: 20071221
  Receipt Date: 20070918
  Transmission Date: 20080405
  Serious: No
  Sender: FDA-Public Use
  Company Number: US-BRISTOL-MYERS SQUIBB COMPANY-13910583

PATIENT
  Age: 35 Year
  Sex: Female
  Weight: 87 kg

DRUGS (8)
  1. ORENCIA [Suspect]
  2. PREDNISONE [Concomitant]
  3. SINGULAIR [Concomitant]
  4. CYMBALTA [Concomitant]
  5. TYLENOL (CAPLET) [Concomitant]
  6. SONATA [Concomitant]
  7. SKELAXIN [Concomitant]
  8. MOBIC [Concomitant]

REACTIONS (4)
  - BLOOD PRESSURE INCREASED [None]
  - FATIGUE [None]
  - INCREASED TENDENCY TO BRUISE [None]
  - JOINT SWELLING [None]
